FAERS Safety Report 6235538-8 (Version None)
Quarter: 2009Q2

REPORT INFORMATION
  Report Type: 
  Country: None (occurrence: None)
  Receive Date: 20090618
  Receipt Date: 20081110
  Transmission Date: 20091009
  Serious: No
  Sender: FDA-Public Use
  Company Number: US-ASTRAZENECA-2008UW25150

PATIENT
  Age: 64 Year
  Sex: Female
  Weight: 68 kg

DRUGS (3)
  1. RHINOCORT [Suspect]
     Indication: SINUSITIS
     Dosage: 1 SPRAY EACH NOSTRIL DAILY
     Route: 045
     Dates: start: 20080601
  2. SUDAFED 12 HOUR [Concomitant]
  3. BISOPROLOL [Concomitant]

REACTIONS (2)
  - NASAL CONGESTION [None]
  - NASAL POLYPS [None]
